FAERS Safety Report 7753059-8 (Version None)
Quarter: 2011Q3

REPORT INFORMATION
  Report Type: 
  Country: None (occurrence: None)
  Receive Date: 20110915
  Receipt Date: 20110906
  Transmission Date: 20111222
  Serious: Yes (Hospitalization)
  Sender: FDA-Public Use
  Company Number: IE-SANOFI-AVENTIS-2011SA057400

PATIENT
  Age: 31 Year
  Sex: Female

DRUGS (5)
  1. TRASTUZUMAB [Suspect]
     Indication: BREAST CANCER STAGE IV
     Route: 065
     Dates: start: 20110725, end: 20110815
  2. CORTICOSTEROID NOS [Concomitant]
     Indication: BREAST CANCER STAGE IV
     Dates: start: 20110725
  3. TAXOTERE [Suspect]
     Indication: BREAST CANCER STAGE IV
     Route: 065
     Dates: start: 20110725
  4. ALL OTHER THERAPEUTIC PRODUCTS [Concomitant]
     Dates: start: 20110725
  5. TRASTUZUMAB [Suspect]
     Route: 065
     Dates: start: 20110815

REACTIONS (15)
  - PARAESTHESIA [None]
  - VOMITING [None]
  - AMNIOTIC FLUID VOLUME DECREASED [None]
  - ABDOMINAL PAIN UPPER [None]
  - COUGH [None]
  - MATERNAL EXPOSURE DURING PREGNANCY [None]
  - FATIGUE [None]
  - INSOMNIA [None]
  - STOMATITIS [None]
  - HAEMOGLOBIN DECREASED [None]
  - SOMNOLENCE [None]
  - RHINORRHOEA [None]
  - VISUAL IMPAIRMENT [None]
  - EPISTAXIS [None]
  - LACRIMATION INCREASED [None]
